FAERS Safety Report 16141609 (Version 3)
Quarter: 2019Q3

REPORT INFORMATION
  Report Type: Report from Study
  Country: US (occurrence: US)
  Receive Date: 20190401
  Receipt Date: 20190930
  Transmission Date: 20191004
  Serious: No
  Sender: FDA-Public Use
  Company Number: US-CLOVIS ONCOLOGY-CLO-2019-000433

PATIENT
  Sex: Female

DRUGS (2)
  1. RUBRACA [Suspect]
     Active Substance: RUCAPARIB CAMSYLATE
     Indication: FALLOPIAN TUBE CANCER
     Dosage: 600 MG, BID
     Route: 048
     Dates: start: 20190214
  2. RUBRACA [Suspect]
     Active Substance: RUCAPARIB CAMSYLATE
     Indication: OVARIAN CANCER
     Dosage: 600 MG, BID
     Route: 048
     Dates: start: 20190301

REACTIONS (11)
  - Alopecia [Unknown]
  - White blood cell count increased [Unknown]
  - Nasopharyngitis [Recovering/Resolving]
  - Tumour marker increased [Unknown]
  - Dysgeusia [Not Recovered/Not Resolved]
  - Therapy partial responder [Unknown]
  - Hepatic enzyme increased [Recovering/Resolving]
  - Oropharyngeal pain [Recovering/Resolving]
  - Paraesthesia oral [Unknown]
  - Carbohydrate antigen 125 increased [Not Recovered/Not Resolved]
  - Product dose omission [Unknown]

NARRATIVE: CASE EVENT DATE: 2019
